FAERS Safety Report 11644930 (Version 2)
Quarter: 2015Q4

REPORT INFORMATION
  Report Type: Spontaneous
  Country: PR (occurrence: PR)
  Receive Date: 20151020
  Receipt Date: 20151028
  Transmission Date: 20160304
  Serious: No
  Sender: FDA-Public Use
  Company Number: PR-PFIZER INC-2015346390

PATIENT
  Age: 50 Year
  Sex: Female
  Weight: 62 kg

DRUGS (1)
  1. LYRICA [Suspect]
     Active Substance: PREGABALIN
     Indication: FIBROMYALGIA
     Dosage: 75MG EACH MORNING AND 3PM, 300MG AT NIGHT
     Dates: start: 2008

REACTIONS (2)
  - Drug tolerance [Unknown]
  - Poor quality sleep [Unknown]
